FAERS Safety Report 16611366 (Version 8)
Quarter: 2020Q3

REPORT INFORMATION
  Report Type: Spontaneous
  Country: TR (occurrence: TR)
  Receive Date: 20190722
  Receipt Date: 20200828
  Transmission Date: 20201102
  Serious: Yes (Other)
  Sender: FDA-Public Use
  Company Number: PHHY2019TR169115

PATIENT
  Age: 24 Year
  Sex: Female

DRUGS (3)
  1. TRILEPTAL [Suspect]
     Active Substance: OXCARBAZEPINE
     Dosage: 300 MG, BID
     Route: 048
     Dates: start: 2005
  2. TRILEPTAL [Suspect]
     Active Substance: OXCARBAZEPINE
     Indication: EPILEPSY
     Dosage: 600 MG, BID
     Route: 048
     Dates: start: 2005
  3. TEGRETOL [Suspect]
     Active Substance: CARBAMAZEPINE
     Indication: EPILEPSY
     Dosage: UNK, MANY YEARS BEFORE
     Route: 065

REACTIONS (12)
  - Delivery [Unknown]
  - Maternal exposure during pregnancy [Unknown]
  - Fall [Recovered/Resolved]
  - Drug ineffective [Not Recovered/Not Resolved]
  - Tongue biting [Unknown]
  - Fatigue [Recovered/Resolved]
  - Product supply issue [Unknown]
  - Normal newborn [Unknown]
  - Seizure [Recovering/Resolving]
  - Memory impairment [Unknown]
  - Product administration error [Unknown]
  - Altered state of consciousness [Recovered/Resolved]
